FAERS Safety Report 11131325 (Version 1)
Quarter: 2015Q2

REPORT INFORMATION
  Report Type: Spontaneous
  Country: FR (occurrence: None)
  Receive Date: 20150520
  Receipt Date: 20150520
  Transmission Date: 20150821
  Serious: Yes (Other)
  Sender: FDA-Public Use
  Company Number: 2015HINLIT0439

PATIENT
  Age: 38 Year
  Sex: Female

DRUGS (3)
  1. DARUNAVIR [Suspect]
     Active Substance: DARUNAVIR
     Indication: ANTIRETROVIRAL THERAPY
     Dosage: INCREASED TO THEIR BASELINE LEVEL, UNKNOWN
  2. RALTEGRAVIR [Suspect]
     Active Substance: RALTEGRAVIR
     Indication: ANTIRETROVIRAL THERAPY
  3. RITONAVIR. [Suspect]
     Active Substance: RITONAVIR
     Indication: ANTIRETROVIRAL THERAPY
     Dosage: INCREASED TO THEIR BASELINE LEVEL, UNKNOWN

REACTIONS (4)
  - Bile output increased [None]
  - Maternal exposure during pregnancy [None]
  - Cholestasis of pregnancy [None]
  - Hepatic enzyme increased [None]
